FAERS Safety Report 6804217-8 (Version None)
Quarter: 2010Q2

REPORT INFORMATION
  Report Type: 
  Country: None (occurrence: None)
  Receive Date: 20100628
  Receipt Date: 20070212
  Transmission Date: 20101027
  Serious: No
  Sender: FDA-Public Use
  Company Number: US-PFIZER INC-2007012168

PATIENT
  Sex: Female
  Weight: 45.36 kg

DRUGS (5)
  1. GEODON [Suspect]
     Dosage: BID: EVERYDAY
     Dates: start: 20070209
  2. TOPAMAX [Concomitant]
  3. ASPIRIN [Concomitant]
  4. ASTHALIN INHALER [Concomitant]
  5. ACEBUTOLOL [Concomitant]

REACTIONS (5)
  - FATIGUE [None]
  - HEADACHE [None]
  - MUSCULAR WEAKNESS [None]
  - NAUSEA [None]
  - TREMOR [None]
